FAERS Safety Report 15459490 (Version 1)
Quarter: 2018Q4

REPORT INFORMATION
  Report Type: Spontaneous
  Country: US (occurrence: US)
  Receive Date: 20181001
  Receipt Date: 20181001
  Transmission Date: 20190204
  Serious: Yes (Hospitalization)
  Sender: FDA-Public Use
  Company Number: None

PATIENT
  Sex: Female

DRUGS (6)
  1. DILANTIN [Concomitant]
     Active Substance: PHENYTOIN
  2. ATIVAN [Concomitant]
     Active Substance: LORAZEPAM
  3. FENTANYL. [Concomitant]
     Active Substance: FENTANYL
  4. FASLODEX [Concomitant]
     Active Substance: FULVESTRANT
  5. ALLOPURINOL. [Concomitant]
     Active Substance: ALLOPURINOL
  6. IBRANCE [Suspect]
     Active Substance: PALBOCICLIB
     Indication: BREAST CANCER FEMALE
     Route: 048
     Dates: start: 20180728

REACTIONS (2)
  - Drug ineffective [None]
  - Metastases to lung [None]
